FAERS Safety Report 9473706 (Version 2)
Quarter: 2013Q3

REPORT INFORMATION
  Report Type: Spontaneous
  Country: US (occurrence: US)
  Receive Date: 20130823
  Receipt Date: 20130823
  Transmission Date: 20140515
  Serious: Yes (Other)
  Sender: FDA-Public Use
  Company Number: US-BRISTOL-MYERS SQUIBB COMPANY-16914848

PATIENT
  Sex: 0

DRUGS (1)
  1. SPRYCEL [Suspect]
     Dosage: SEVERAL MONTHS AGO
     Dates: start: 201112, end: 201204

REACTIONS (1)
  - Diarrhoea [Recovered/Resolved]
